FAERS Safety Report 10310956 (Version 1)
Quarter: 2014Q3

REPORT INFORMATION
  Report Type: Spontaneous
  Country: US (occurrence: None)
  Receive Date: 20140716
  Receipt Date: 20140716
  Transmission Date: 20150326
  Serious: Yes (Other)
  Sender: FDA-Public Use
  Company Number: None

PATIENT
  Age: 72 Year
  Sex: Male
  Weight: 93 kg

DRUGS (20)
  1. ALLOPURINOL. [Concomitant]
     Active Substance: ALLOPURINOL
  2. LEVOFLOXACIN [Concomitant]
     Active Substance: LEVOFLOXACIN
  3. ASPIRIN. [Concomitant]
     Active Substance: ASPIRIN
  4. CHLORDIAZEPOXIDE [Concomitant]
     Active Substance: CHLORDIAZEPOXIDE
  5. OLANZAPINE. [Concomitant]
     Active Substance: OLANZAPINE
  6. FLUOXETINE [Concomitant]
     Active Substance: FLUOXETINE\FLUOXETINE HYDROCHLORIDE
  7. AMLODIPINE [Concomitant]
     Active Substance: AMLODIPINE BESYLATE
  8. LIDOCAINE PATCHES [Concomitant]
  9. MORPHINE SULFATE EXTENDED-RELEASE [Suspect]
     Active Substance: MORPHINE SULFATE
     Indication: PAIN
     Route: 048
  10. CALCITONIN NASAL SPRAY [Concomitant]
  11. LISINOPRIL. [Concomitant]
     Active Substance: LISINOPRIL
  12. POLYETHYLENE GLYCOL [Concomitant]
     Active Substance: POLYETHYLENE GLYCOLS
  13. SITACLIPTIN [Concomitant]
  14. ATORVASTATIN [Concomitant]
     Active Substance: ATORVASTATIN
  15. NICOTINE TRANSDERMAL SYSTEM [Concomitant]
     Active Substance: NICOTINE
  16. MORPHINE IR [Suspect]
     Active Substance: MORPHINE
     Indication: PAIN
     Route: 048
  17. RENAL VITAMIN [Concomitant]
  18. TIOTROPIUM INHALE [Concomitant]
  19. CHOLECALCIFEROL [Concomitant]
     Active Substance: CHOLECALCIFEROL
  20. ALBUTEROL/IPRATROPIUM NEBULIZER SOLN [Concomitant]

REACTIONS (6)
  - Unresponsive to stimuli [None]
  - Cyanosis [None]
  - Joint range of motion decreased [None]
  - Posture abnormal [None]
  - Obstructive airways disorder [None]
  - Squamous cell carcinoma [None]

NARRATIVE: CASE EVENT DATE: 20140114
